FAERS Safety Report 13858527 (Version 1)
Quarter: 2017Q3

REPORT INFORMATION
  Report Type: Spontaneous
  Country: US (occurrence: US)
  Receive Date: 20170810
  Receipt Date: 20170810
  Transmission Date: 20171127
  Serious: Yes (Other)
  Sender: FDA-Public Use
  Company Number: None

PATIENT
  Age: 75 Year
  Sex: Female

DRUGS (1)
  1. XARELTO [Suspect]
     Active Substance: RIVAROXABAN
     Route: 048

REACTIONS (5)
  - Headache [None]
  - Nausea [None]
  - Diarrhoea [None]
  - Paraesthesia [None]
  - Back pain [None]

NARRATIVE: CASE EVENT DATE: 20170807
